FAERS Safety Report 9252487 (Version 1)
Quarter: 2013Q2

REPORT INFORMATION
  Report Type: Report from Study
  Country: CA (occurrence: CA)
  Receive Date: 20130424
  Receipt Date: 20130424
  Transmission Date: 20140414
  Serious: Yes (Hospitalization)
  Sender: FDA-Public Use
  Company Number: CA-GILEAD-2013-0073999

PATIENT
  Age: 64 Year
  Sex: Female

DRUGS (4)
  1. AMBRISENTAN [Suspect]
     Indication: PULMONARY ARTERIAL HYPERTENSION
     Dosage: 5 MG, QD
     Route: 048
     Dates: start: 20090702
  2. METOPROLOL [Concomitant]
     Indication: HYPERTENSION
     Dosage: 2.5MG TWICE PER DAY
     Route: 048
     Dates: start: 2012
  3. WARFARIN [Concomitant]
     Indication: CORONARY ARTERY DISEASE
     Dosage: 4MG PER DAY
     Route: 048
     Dates: start: 20121026
  4. NIFEDIPINE [Concomitant]
     Indication: CORONARY ARTERY DISEASE
     Dosage: 30MG TWICE PER DAY
     Route: 048
     Dates: start: 199406

REACTIONS (2)
  - Cardiac output decreased [Recovered/Resolved]
  - Vasculitis [Not Recovered/Not Resolved]
